FAERS Safety Report 7423187-5 (Version None)
Quarter: 2011Q2

REPORT INFORMATION
  Report Type: 
  Country: None (occurrence: None)
  Receive Date: 20110419
  Receipt Date: 20101022
  Transmission Date: 20111010
  Serious: Yes (Other)
  Sender: FDA-Public Use
  Company Number: US-BAYER-200943649NA

PATIENT
  Age: 23 Year
  Sex: Female
  Weight: 67 kg

DRUGS (4)
  1. YASMIN [Suspect]
     Indication: PREMENSTRUAL SYNDROME
  2. YASMIN [Suspect]
     Indication: ORAL CONTRACEPTION
     Route: 048
     Dates: start: 20070801, end: 20090215
  3. IBUPROFEN [Concomitant]
     Route: 065
  4. ORTHO TRI-CYCLEN LO [Concomitant]
     Route: 065
     Dates: start: 20090201

REACTIONS (5)
  - VOMITING [None]
  - NAUSEA [None]
  - CHOLECYSTITIS CHRONIC [None]
  - ABDOMINAL PAIN UPPER [None]
  - GALLBLADDER CHOLESTEROLOSIS [None]
